FAERS Safety Report 4469982-6 (Version None)
Quarter: 2004Q3

REPORT INFORMATION
  Report Type: 
  Country: None (occurrence: None)
  Receive Date: 20040920
  Receipt Date: 20040624
  Transmission Date: 20050211
  Serious: No
  Sender: FDA-Public Use
  Company Number: A-US2004-05411

PATIENT
  Age: 72 Year
  Sex: Female

DRUGS (9)
  1. TRACLEER [Suspect]
     Indication: PULMONARY HYPERTENSION
     Dosage: 62.5 MG, ORAL
     Route: 048
     Dates: start: 20040305, end: 20040306
  2. LORTAB [Concomitant]
  3. ATIVAN [Concomitant]
  4. ANTIVERT [Concomitant]
  5. ZOLOFT [Concomitant]
  6. VIOXX [Concomitant]
  7. CALCIUM (CALCIUM) [Concomitant]
  8. MAGNESIUIM [Concomitant]
  9. B COMPLEX (NICOTINAMIDE, PYRIDOXINE HYDROCHLORIDE, RIBOFLAVIN, THIAMIN [Concomitant]

REACTIONS (4)
  - DIZZINESS [None]
  - HYPOAESTHESIA [None]
  - HYPOVENTILATION [None]
  - UNEVALUABLE EVENT [None]
